FAERS Safety Report 8161254-1 (Version None)
Quarter: 2012Q1

REPORT INFORMATION
  Report Type: 
  Country: None (occurrence: None)
  Receive Date: 20120224
  Receipt Date: 20120213
  Transmission Date: 20120608
  Serious: No
  Sender: FDA-Public Use
  Company Number: US-JNJFOC-20120207415

PATIENT
  Sex: Female
  Weight: 63.5 kg

DRUGS (3)
  1. FENTANYL-100 [Suspect]
     Indication: FIBROMYALGIA
     Route: 062
     Dates: start: 20120101
  2. AN UNKNOWN MEDICATION [Concomitant]
  3. FENTANYL-100 [Suspect]
     Indication: NERVE INJURY
     Route: 062
     Dates: start: 20120101

REACTIONS (2)
  - PRODUCT QUALITY ISSUE [None]
  - WRONG TECHNIQUE IN DRUG USAGE PROCESS [None]
